FAERS Safety Report 9542950 (Version 1)
Quarter: 2013Q3

REPORT INFORMATION
  Report Type: Report from Study
  Country: CA (occurrence: CA)
  Receive Date: 20130923
  Receipt Date: 20130923
  Transmission Date: 20140515
  Serious: Yes (Life-Threatening, Hospitalization)
  Sender: FDA-Public Use
  Company Number: CA-009507513-1309CAN009810

PATIENT
  Age: 62 Year
  Sex: Male
  Weight: 82 kg

DRUGS (8)
  1. BOCEPREVIR [Suspect]
     Indication: HEPATITIS C
     Dosage: 800 MG, Q8H
     Route: 048
     Dates: start: 20130822, end: 20130918
  2. PEGINTERFERON ALFA-2A [Suspect]
     Indication: HEPATITIS C
     Dosage: 120 MICROGRAM, QW
     Route: 058
     Dates: start: 20130718, end: 20130912
  3. RIBAVIRIN [Suspect]
     Indication: HEPATITIS C
     Dosage: 600 MG, QD
     Route: 048
     Dates: start: 20130907, end: 20130918
  4. NADOLOL [Concomitant]
     Indication: PRODUCT USED FOR UNKNOWN INDICATION
     Dosage: 40 MG, QD
     Route: 048
     Dates: start: 201109
  5. PARIET [Concomitant]
     Indication: DYSPEPSIA
     Dosage: 20 MG, QD
     Route: 048
     Dates: start: 201109
  6. FOLIC ACID [Concomitant]
     Indication: ROUTINE HEALTH MAINTENANCE
     Dosage: 1 MG, QD
     Route: 048
     Dates: start: 20130718
  7. CYANOCOBALAMIN [Concomitant]
     Indication: ROUTINE HEALTH MAINTENANCE
     Dosage: 1000 MICROGRAM, QD
     Route: 048
     Dates: start: 20130718
  8. FERROUS GLUCONATE [Concomitant]
     Indication: ROUTINE HEALTH MAINTENANCE
     Dosage: 300 MG, QD
     Route: 048
     Dates: start: 20130718

REACTIONS (2)
  - Ascites [Not Recovered/Not Resolved]
  - Thrombocytopenia [Not Recovered/Not Resolved]
